FAERS Safety Report 25281097 (Version 1)
Quarter: 2025Q2

REPORT INFORMATION
  Report Type: Report from Study
  Country: US (occurrence: US)
  Receive Date: 20250508
  Receipt Date: 20250508
  Transmission Date: 20250716
  Serious: Yes (Other)
  Sender: TAKEDA
  Company Number: US-TAKEDA-2024TUS109726

PATIENT
  Sex: Female
  Weight: 74.3 kg

DRUGS (15)
  1. TEDUGLUTIDE [Suspect]
     Active Substance: TEDUGLUTIDE
     Indication: Short-bowel syndrome
     Dosage: 0.37 MILLILITER, QD
     Dates: start: 20241021
  2. TEDUGLUTIDE [Suspect]
     Active Substance: TEDUGLUTIDE
     Indication: Malabsorption
     Dosage: UNK UNK, QD
  3. TEDUGLUTIDE [Suspect]
     Active Substance: TEDUGLUTIDE
     Dosage: 3.7 MILLIGRAM, QD
  4. TEDUGLUTIDE [Suspect]
     Active Substance: TEDUGLUTIDE
  5. ACETAMINOPHEN [Concomitant]
     Active Substance: ACETAMINOPHEN
  6. FAMOTIDINE [Concomitant]
     Active Substance: FAMOTIDINE
  7. OPIUM TINCTURE [Concomitant]
     Active Substance: MORPHINE
     Indication: Short-bowel syndrome
  8. OPIUM TINCTURE [Concomitant]
     Active Substance: MORPHINE
     Indication: Malabsorption
  9. LOPERAMIDE [Concomitant]
     Active Substance: LOPERAMIDE
  10. VITAMIN D3 [Concomitant]
     Active Substance: CHOLECALCIFEROL
  11. IMODIUM [Concomitant]
     Active Substance: LOPERAMIDE HYDROCHLORIDE
     Indication: Short-bowel syndrome
  12. IMODIUM [Concomitant]
     Active Substance: LOPERAMIDE HYDROCHLORIDE
     Indication: Malabsorption
  13. SELENIUM [Concomitant]
     Active Substance: SELENIUM
  14. SALINE [Concomitant]
     Active Substance: SODIUM CHLORIDE
  15. TPN [Concomitant]
     Active Substance: AMINO ACIDS\DEXTROSE\ELECTROLYTES NOS\SOYBEAN OIL

REACTIONS (6)
  - Muscle spasms [Unknown]
  - Gastrointestinal stoma output increased [Recovering/Resolving]
  - Stoma site inflammation [Unknown]
  - Weight fluctuation [Unknown]
  - Headache [Recovering/Resolving]
  - Nausea [Recovering/Resolving]
